FAERS Safety Report 5238378-1 (Version None)
Quarter: 2007Q1

REPORT INFORMATION
  Report Type: 
  Country: None (occurrence: None)
  Receive Date: 20070215
  Receipt Date: 20070205
  Transmission Date: 20070707
  Serious: Yes (Other)
  Sender: FDA-Public Use
  Company Number: US-ROCHE-470587

PATIENT
  Age: 43 Year
  Sex: Female
  Weight: 58.1 kg

DRUGS (4)
  1. ACCUTANE [Suspect]
     Route: 048
     Dates: start: 19840615
  2. ACCUTANE [Suspect]
     Dosage: STRENGTH: 20 MG.
     Route: 048
     Dates: start: 20040209
  3. ACCUTANE [Suspect]
     Route: 048
     Dates: start: 20040615
  4. XANAX [Concomitant]
     Indication: ANXIETY
     Route: 048

REACTIONS (5)
  - DIVERTICULITIS [None]
  - HAEMORRHAGE [None]
  - IRRITABLE BOWEL SYNDROME [None]
  - LARGE INTESTINE PERFORATION [None]
  - OSTEOPENIA [None]
